FAERS Safety Report 9641604 (Version 1)
Quarter: 2013Q4

REPORT INFORMATION
  Report Type: Spontaneous
  Country: CA (occurrence: CA)
  Receive Date: 20131023
  Receipt Date: 20131023
  Transmission Date: 20140711
  Serious: Yes (Hospitalization, Other)
  Sender: FDA-Public Use
  Company Number: CA-VIIV HEALTHCARE LIMITED-A1046371A

PATIENT
  Age: 28 Year
  Sex: Female
  Weight: 63 kg

DRUGS (7)
  1. COMBIVIR [Suspect]
     Indication: PRODUCT USED FOR UNKNOWN INDICATION
     Dosage: 300MG TWICE PER DAY
     Route: 048
  2. COMBIVIR [Suspect]
     Indication: PRODUCT USED FOR UNKNOWN INDICATION
     Dosage: 150MG TWICE PER DAY
     Route: 048
  3. ACETAMINOPHEN [Concomitant]
     Route: 048
  4. MATERNA [Concomitant]
     Route: 048
  5. DICLECTIN [Concomitant]
     Route: 045
  6. IRON SULPHATE [Concomitant]
     Route: 048
  7. KALETRA [Concomitant]
     Route: 048

REACTIONS (5)
  - Asthenia [Unknown]
  - Dyspnoea [Unknown]
  - Haemoglobin decreased [Unknown]
  - Headache [Unknown]
  - Migraine [Unknown]
